FAERS Safety Report 20467111 (Version 2)
Quarter: 2022Q2

REPORT INFORMATION
  Report Type: Spontaneous
  Country: CZ (occurrence: CZ)
  Receive Date: 20220214
  Receipt Date: 20220403
  Transmission Date: 20220721
  Serious: Yes (Death, Other)
  Sender: FDA-Public Use
  Company Number: CZ-MYLANLABS-2022M1008846

PATIENT
  Age: 59 Year
  Sex: Male

DRUGS (21)
  1. IRINOTECAN [Suspect]
     Active Substance: IRINOTECAN
     Indication: Colorectal cancer stage IV
     Dosage: UNK
     Route: 065
     Dates: start: 202004, end: 202011
  2. IRINOTECAN [Suspect]
     Active Substance: IRINOTECAN
     Indication: Disease progression
     Dosage: UNK
     Route: 065
     Dates: start: 2020
  3. IRINOTECAN [Suspect]
     Active Substance: IRINOTECAN
     Indication: Colorectal cancer metastatic
  4. OXALIPLATIN [Suspect]
     Active Substance: OXALIPLATIN
     Indication: Colorectal cancer stage IV
     Dosage: UNK
     Route: 065
  5. OXALIPLATIN [Suspect]
     Active Substance: OXALIPLATIN
     Indication: Adenocarcinoma
  6. OXALIPLATIN [Suspect]
     Active Substance: OXALIPLATIN
     Indication: Rectal cancer
  7. ZALTRAP [Suspect]
     Active Substance: ZIV-AFLIBERCEPT
     Indication: Disease progression
     Dosage: 4 MILLIGRAM/KILOGRAM
     Route: 065
     Dates: start: 202004
  8. ZALTRAP [Suspect]
     Active Substance: ZIV-AFLIBERCEPT
     Indication: Colorectal cancer stage IV
     Dosage: 4 MILLIGRAM/KILOGRAM
     Route: 065
     Dates: start: 202004
  9. ZALTRAP [Suspect]
     Active Substance: ZIV-AFLIBERCEPT
     Indication: Colorectal cancer metastatic
  10. FLUOROURACIL [Suspect]
     Active Substance: FLUOROURACIL
     Indication: Adenocarcinoma
     Dosage: UNK
     Route: 065
     Dates: start: 2020
  11. FLUOROURACIL [Suspect]
     Active Substance: FLUOROURACIL
     Indication: Disease progression
  12. FLUOROURACIL [Suspect]
     Active Substance: FLUOROURACIL
     Indication: Colorectal cancer stage IV
  13. FLUOROURACIL [Suspect]
     Active Substance: FLUOROURACIL
     Indication: Rectal cancer
  14. LEUCOVORIN [Suspect]
     Active Substance: LEUCOVORIN
     Indication: Disease progression
     Dosage: UNK
     Route: 065
     Dates: start: 202004, end: 202011
  15. LEUCOVORIN [Suspect]
     Active Substance: LEUCOVORIN
     Indication: Adenocarcinoma
  16. LEUCOVORIN [Suspect]
     Active Substance: LEUCOVORIN
     Indication: Colorectal cancer stage IV
  17. LEUCOVORIN [Suspect]
     Active Substance: LEUCOVORIN
     Indication: Rectal cancer
  18. VECTIBIX [Suspect]
     Active Substance: PANITUMUMAB
     Indication: Adenocarcinoma
     Dosage: 6 MILLIGRAM/KILOGRAM, TWO TIMES A DAY
     Route: 065
  19. VECTIBIX [Suspect]
     Active Substance: PANITUMUMAB
     Indication: Colorectal cancer stage IV
  20. VECTIBIX [Suspect]
     Active Substance: PANITUMUMAB
     Indication: Colorectal cancer metastatic
  21. TRIFLURIDINE [Suspect]
     Active Substance: TRIFLURIDINE
     Indication: Rectal cancer
     Dosage: UNK
     Route: 065
     Dates: start: 202011

REACTIONS (9)
  - Death [Fatal]
  - Colorectal cancer metastatic [Unknown]
  - Hypertrichosis [Unknown]
  - Paronychia [Unknown]
  - Rash [Unknown]
  - Rectal haemorrhage [Recovered/Resolved]
  - Paraesthesia [Unknown]
  - Rectal tenesmus [Recovered/Resolved]
  - Toxicity to various agents [Unknown]

NARRATIVE: CASE EVENT DATE: 20200101
